FAERS Safety Report 4913392-1 (Version None)
Quarter: 2006Q1

REPORT INFORMATION
  Report Type: 
  Country: None (occurrence: None)
  Receive Date: 20060210
  Receipt Date: 20060201
  Transmission Date: 20060701
  Serious: Yes (Disabling, Other)
  Sender: FDA-Public Use
  Company Number: 221740

PATIENT
  Age: 43 Year
  Sex: Male

DRUGS (6)
  1. ACTIVASE [Suspect]
     Indication: PERIPHERAL ISCHAEMIA
     Dosage: 0.1 MG/KG, SINGLE, INTRA-ARTERIAL
     Route: 013
  2. ASPIRIN [Suspect]
     Dosage: 100 MG,
  3. HEPARIN [Suspect]
     Indication: PERIPHERAL ISCHAEMIA
  4. ILOPROST (ILOPROST) [Suspect]
     Indication: PERIPHERAL ISCHAEMIA
  5. NIFEDIPINE [Suspect]
     Indication: PERIPHERAL ISCHAEMIA
     Dosage: 60 MG, ORAL
     Route: 048
  6. MIDAZOLAM [Concomitant]

REACTIONS (7)
  - CYANOSIS [None]
  - DRUG EFFECT DECREASED [None]
  - EXTREMITY NECROSIS [None]
  - FINGER AMPUTATION [None]
  - OEDEMA PERIPHERAL [None]
  - PAIN IN EXTREMITY [None]
  - REPERFUSION INJURY [None]
